FAERS Safety Report 17375370 (Version 2)
Quarter: 2020Q1

REPORT INFORMATION
  Report Type: Spontaneous
  Country: PL (occurrence: PL)
  Receive Date: 20200206
  Receipt Date: 20200225
  Transmission Date: 20200409
  Serious: Yes (Hospitalization, Other)
  Sender: FDA-Public Use
  Company Number: PL-AUROBINDO-AUR-APL-2020-005557

PATIENT
  Age: 80 Year
  Sex: Female

DRUGS (4)
  1. TIAPRIDE [Concomitant]
     Active Substance: TIAPRIDE
     Indication: DEMENTIA
     Dosage: 25 MILLIGRAM, 3 TIMES A DAY
     Route: 065
  2. TIAPRIDE [Concomitant]
     Active Substance: TIAPRIDE
     Dosage: UNK (25-25-100 MG)
     Route: 065
  3. QUETIAPINE. [Suspect]
     Active Substance: QUETIAPINE
     Indication: SEDATION
     Dosage: 50 MILLIGRAM, ONCE A DAY (IN THE EVENING)
     Route: 065
  4. QUETIAPINE. [Suspect]
     Active Substance: QUETIAPINE
     Indication: SLEEP DISORDER
     Dosage: 25 MILLIGRAM, ONCE A DAY (IN THE EVENING) (TREATMENT REDUCED TO HALF)
     Route: 065

REACTIONS (9)
  - Product use in unapproved indication [Unknown]
  - Abdominal pain [Unknown]
  - Disorientation [Unknown]
  - Asthenia [Unknown]
  - Off label use [Unknown]
  - Hypotension [Unknown]
  - Extra dose administered [Unknown]
  - Constipation [Unknown]
  - Confusional state [Unknown]
